FAERS Safety Report 23822975 (Version 3)
Quarter: 2024Q3

REPORT INFORMATION
  Report Type: Report from Study
  Country: US (occurrence: US)
  Receive Date: 20240506
  Receipt Date: 20240914
  Transmission Date: 20241017
  Serious: Yes (Other)
  Sender: ABBVIE
  Company Number: US-ABBVIE-5740233

PATIENT
  Age: 51 Year
  Sex: Male

DRUGS (8)
  1. HUMIRA [Suspect]
     Active Substance: ADALIMUMAB
     Indication: Rheumatoid arthritis
     Route: 058
     Dates: start: 2010, end: 2012
  2. CELEBREX [Concomitant]
     Active Substance: CELECOXIB
     Indication: Rheumatoid arthritis
     Dates: start: 2010
  3. REMICADE [Suspect]
     Active Substance: INFLIXIMAB
     Indication: Product used for unknown indication
     Route: 065
     Dates: start: 2019
  4. PREDNISONE [Suspect]
     Active Substance: PREDNISONE
     Indication: Product used for unknown indication
     Route: 065
  5. PNEUMOCOCCAL VACCINE POLYVALENT NOS [Suspect]
     Active Substance: PNEUMOCOCCAL VACCINE, POLYVALENT
     Indication: Product used for unknown indication
     Route: 065
     Dates: start: 2022, end: 2022
  6. ENBREL [Suspect]
     Active Substance: ETANERCEPT
     Indication: Product used for unknown indication
     Route: 065
     Dates: start: 2012, end: 2022
  7. RINVOQ [Suspect]
     Active Substance: UPADACITINIB
     Indication: Arthralgia
     Dosage: 2 TABLET PER DAY
     Route: 048
     Dates: start: 20230901
  8. RINVOQ [Suspect]
     Active Substance: UPADACITINIB
     Indication: Arthralgia
     Dosage: 1 TABLET PER DAY
     Route: 048

REACTIONS (22)
  - Arthropathy [Recovered/Resolved]
  - Pain [Not Recovered/Not Resolved]
  - Herpes zoster [Recovered/Resolved]
  - Pain [Not Recovered/Not Resolved]
  - Type 2 diabetes mellitus [Not Recovered/Not Resolved]
  - Dyspnoea [Not Recovered/Not Resolved]
  - Pneumonia [Recovered/Resolved]
  - Hepatitis B [Not Recovered/Not Resolved]
  - Therapeutic product effect decreased [Not Recovered/Not Resolved]
  - Back disorder [Recovered/Resolved with Sequelae]
  - Lung disorder [Not Recovered/Not Resolved]
  - Immunisation reaction [Unknown]
  - Immune system disorder [Unknown]
  - Blood glucose decreased [Unknown]
  - Degenerative bone disease [Unknown]
  - Burning sensation [Not Recovered/Not Resolved]
  - Spinal disorder [Not Recovered/Not Resolved]
  - Drug ineffective [Unknown]
  - Sciatica [Not Recovered/Not Resolved]
  - Nightmare [Unknown]
  - Tooth abscess [Unknown]
  - Rheumatoid lung [Unknown]

NARRATIVE: CASE EVENT DATE: 20120101
